FAERS Safety Report 4694683-9 (Version None)
Quarter: 2005Q2

REPORT INFORMATION
  Report Type: 
  Country: None (occurrence: None)
  Receive Date: 20050620
  Receipt Date: 20050614
  Transmission Date: 20051028
  Serious: Yes (Other)
  Sender: FDA-Public Use
  Company Number: AU-GLAXOSMITHKLINE-B0384520A

PATIENT
  Age: 33 Year
  Sex: Female

DRUGS (5)
  1. FLUCLOXACILLIN [Suspect]
     Indication: WOUND
     Dosage: 500MG PER DAY
     Route: 048
     Dates: start: 19951227
  2. CEFOTETAN DISODIUM [Suspect]
     Dosage: 1U PER DAY
     Route: 065
     Dates: start: 19951219
  3. AMOXICILLIN TRIHYDRATE [Suspect]
     Indication: WOUND
     Dosage: 1.5G PER DAY
     Route: 048
     Dates: start: 19951224
  4. METRONIDAZOLE [Suspect]
     Indication: WOUND
     Dosage: 1.5G PER DAY
     Route: 048
     Dates: start: 19951224
  5. VANCOMYCIN HYDROCHLORIDE [Concomitant]

REACTIONS (2)
  - ANAEMIA HAEMOLYTIC AUTOIMMUNE [None]
  - HAEMATURIA [None]
